FAERS Safety Report 14033468 (Version 1)
Quarter: 2017Q4

REPORT INFORMATION
  Report Type: Spontaneous
  Country: DE (occurrence: DE)
  Receive Date: 20171003
  Receipt Date: 20171003
  Transmission Date: 20180321
  Serious: Yes (Hospitalization)
  Sender: FDA-Public Use
  Company Number: DE-ACCORD-059267

PATIENT
  Age: 14 Month
  Sex: Female
  Weight: 7.7 kg

DRUGS (1)
  1. TACROLIMUS. [Suspect]
     Active Substance: TACROLIMUS
     Indication: CONGENITAL ABSENCE OF BILE DUCTS

REACTIONS (5)
  - Condition aggravated [Unknown]
  - Renal tubular acidosis [Unknown]
  - Nephrocalcinosis [Unknown]
  - Nephrogenic diabetes insipidus [Unknown]
  - Acute kidney injury [Recovered/Resolved]
